FAERS Safety Report 5150360-1 (Version None)
Quarter: 2006Q4

REPORT INFORMATION
  Report Type: 
  Country: None (occurrence: None)
  Receive Date: 20061114
  Receipt Date: 20061109
  Transmission Date: 20070319
  Serious: Yes (Death)
  Sender: FDA-Public Use
  Company Number: HR-NOVOPROD-258463

PATIENT
  Age: 66 Year
  Sex: Male
  Weight: 90 kg

DRUGS (5)
  1. NOVOSEVEN [Suspect]
     Indication: POST PROCEDURAL HAEMORRHAGE
     Dosage: 4.8 MG, UNK
     Route: 042
     Dates: start: 20061030, end: 20061030
  2. CRYOPRECIPITATES [Concomitant]
     Dates: start: 20061030, end: 20061030
  3. RED BLOOD CELLS [Concomitant]
     Dates: start: 20061030, end: 20061030
  4. FRESH FROZEN PLASMA [Concomitant]
     Dates: start: 20061030, end: 20061030
  5. ANTITHROMBIN III [Concomitant]
     Dosage: UNK, UNK
     Dates: start: 20061030, end: 20061030

REACTIONS (1)
  - SHOCK HAEMORRHAGIC [None]
